FAERS Safety Report 6898236-3 (Version None)
Quarter: 2010Q3

REPORT INFORMATION
  Report Type: 
  Country: None (occurrence: None)
  Receive Date: 20100802
  Receipt Date: 20070927
  Transmission Date: 20110219
  Serious: Yes (Other)
  Sender: FDA-Public Use
  Company Number: US-PFIZER INC-2007077726

PATIENT
  Sex: Female
  Weight: 90.909 kg

DRUGS (16)
  1. LYRICA [Suspect]
     Indication: FIBROMYALGIA
     Route: 048
     Dates: start: 20070913, end: 20070927
  2. LYRICA [Suspect]
     Indication: NERVE INJURY
  3. FUROSEMIDE [Concomitant]
  4. TRICOR [Concomitant]
  5. FAMOTIDINE [Concomitant]
  6. LEVOTHROID [Concomitant]
  7. ZYRTEC [Concomitant]
  8. NIFEDICAL [Concomitant]
  9. METFORMIN HCL [Concomitant]
  10. SIMVASTATIN [Concomitant]
  11. QUINAPRIL HYDROCHLORIDE [Concomitant]
  12. ASPIRIN [Concomitant]
  13. CENTRUM SILVER [Concomitant]
  14. CALCIUM [Concomitant]
  15. VITAMIN E [Concomitant]
  16. TYLENOL [Concomitant]

REACTIONS (6)
  - DIPLOPIA [None]
  - ERYTHEMA [None]
  - FEELING ABNORMAL [None]
  - GAIT DISTURBANCE [None]
  - PAIN [None]
  - VISION BLURRED [None]
